FAERS Safety Report 14264876 (Version 2)
Quarter: 2017Q4

REPORT INFORMATION
  Report Type: Spontaneous
  Country: ES (occurrence: ES)
  Receive Date: 20171208
  Receipt Date: 20171218
  Transmission Date: 20180321
  Serious: Yes (Hospitalization)
  Sender: FDA-Public Use
  Company Number: ES-TEVA-2017-ES-831347

PATIENT
  Age: 64 Year
  Sex: Male

DRUGS (4)
  1. RAMUCIRUMAB [Suspect]
     Active Substance: RAMUCIRUMAB
     Indication: ADENOCARCINOMA GASTRIC
     Dosage: 496 MG (8 MG/KG) ON DAY 1
     Route: 065
     Dates: start: 201502
  2. PACLITAXEL. [Concomitant]
     Active Substance: PACLITAXEL
     Indication: ADENOCARCINOMA GASTRIC
     Dosage: 137 MG (80 MG/ME2) ON DAYS 1 AND 8
     Route: 042
     Dates: start: 201502
  3. LEVOFLOXACIN. [Concomitant]
     Active Substance: LEVOFLOXACIN
     Indication: RESPIRATORY TRACT INFECTION
     Dosage: 500 MILLIGRAM DAILY; 500MG/DAY
     Route: 065
  4. G-CSF (TEVAGRASTIM/RATIOGRASTIM) [Suspect]
     Active Substance: FILGRASTIM
     Indication: ADENOCARCINOMA GASTRIC
     Dosage: 300 MICROG, 2 CONSECUTIVE WEEKLY DOSES FOR 3 WEEKS
     Route: 058

REACTIONS (3)
  - Splenic rupture [Unknown]
  - Rectal haemorrhage [Unknown]
  - Peritoneal haemorrhage [Unknown]
